FAERS Safety Report 5981336-X (Version None)
Quarter: 2008Q4

REPORT INFORMATION
  Report Type: 
  Country: None (occurrence: None)
  Receive Date: 20081205
  Receipt Date: 20081201
  Transmission Date: 20090506
  Serious: Yes (Hospitalization)
  Sender: FDA-Public Use
  Company Number: CG-MERCK-0812USA00487

PATIENT
  Age: 36 Year
  Sex: Male

DRUGS (1)
  1. STROMECTOL [Suspect]
     Indication: ONCHOCERCIASIS
     Route: 048
     Dates: start: 20081015, end: 20081015

REACTIONS (8)
  - ABNORMAL BEHAVIOUR [None]
  - CONJUNCTIVAL HAEMORRHAGE [None]
  - DYSSTASIA [None]
  - GAIT DISTURBANCE [None]
  - HYPERTENSION [None]
  - JOINT STIFFNESS [None]
  - NUCHAL RIGIDITY [None]
  - PYREXIA [None]
